FAERS Safety Report 5133647-8 (Version None)
Quarter: 2006Q4

REPORT INFORMATION
  Report Type: 
  Country: None (occurrence: None)
  Receive Date: 20061018
  Receipt Date: 20061007
  Transmission Date: 20070319
  Serious: Yes (Hospitalization)
  Sender: FDA-Public Use
  Company Number: 2006123754

PATIENT
  Sex: Male

DRUGS (2)
  1. AMLODIPINE [Suspect]
     Dosage: ORAL
     Route: 048
  2. DIURETICS (DIURETICS) [Concomitant]

REACTIONS (1)
  - ACUTE PULMONARY OEDEMA [None]
